FAERS Safety Report 6762931-7 (Version None)
Quarter: 2010Q2

REPORT INFORMATION
  Report Type: 
  Country: None (occurrence: None)
  Receive Date: 20100608
  Receipt Date: 20100608
  Transmission Date: 20101027
  Serious: Yes (Life-Threatening, Hospitalization)
  Sender: FDA-Public Use
  Company Number: None

PATIENT
  Age: 76 Year
  Sex: Female
  Weight: 72.5755 kg

DRUGS (1)
  1. REMIICADE - 100 MG - CENTOCOR [Suspect]
     Dosage: 400 MG EVERY 2 MO. IV
     Route: 042
     Dates: start: 20050902, end: 20091203

REACTIONS (7)
  - BLOOD PRESSURE INCREASED [None]
  - CARDIAC VALVE DISEASE [None]
  - CYANOSIS [None]
  - FUNGAL INFECTION [None]
  - GAIT DISTURBANCE [None]
  - HEART VALVE INCOMPETENCE [None]
  - INFUSION RELATED REACTION [None]
